FAERS Safety Report 5530789-X (Version None)
Quarter: 2007Q4

REPORT INFORMATION
  Report Type: 
  Country: None (occurrence: None)
  Receive Date: 20071130
  Receipt Date: 20071127
  Transmission Date: 20080405
  Serious: Yes (Hospitalization, Other)
  Sender: FDA-Public Use
  Company Number: US-MERCK-0709USA01700

PATIENT
  Age: 81 Year
  Sex: Female

DRUGS (2)
  1. FOSAMAX [Suspect]
     Indication: OSTEOPOROSIS
     Route: 048
     Dates: start: 20041001, end: 20070601
  2. PENICILLIN (UNSPECIFIED) [Concomitant]
     Route: 065
     Dates: end: 20070612

REACTIONS (4)
  - ANAEMIA [None]
  - CARDIAC DISORDER [None]
  - OSTEOMYELITIS [None]
  - OSTEONECROSIS [None]
